FAERS Safety Report 8110679 (Version 2)
Quarter: 2012Q4

REPORT INFORMATION
  Report Type: Report from Study
  Country: KR (occurrence: KR)
  Receive Date: 20110829
  Receipt Date: 20121101
  Transmission Date: 20130627
  Serious: Yes (Hospitalization)
  Sender: FDA-Public Use
  Company Number: PHHO2011KR14003

PATIENT
  Age: 50 Year
  Sex: Male
  Weight: 65 kg

DRUGS (5)
  1. EVEROLIMUS [Suspect]
     Indication: RENAL TRANSPLANT
     Dosage: 2 mg morning / 2.25 mg evening
     Route: 048
  2. NEORAL [Suspect]
     Indication: RENAL TRANSPLANT
     Dosage: 225 mg, BID
     Route: 048
     Dates: start: 20110718
  3. ZOLPIDEM [Concomitant]
  4. SEPTRIN [Concomitant]
  5. METHYLPREDNISOLON ^JENAPHARM^ [Concomitant]

REACTIONS (1)
  - Wound dehiscence [Recovered/Resolved]
